FAERS Safety Report 17279419 (Version 2)
Quarter: 2020Q1

REPORT INFORMATION
  Report Type: Report from Study
  Country: US (occurrence: US)
  Receive Date: 20200116
  Receipt Date: 20200211
  Transmission Date: 20200409
  Serious: Yes (Hospitalization)
  Sender: FDA-Public Use
  Company Number: NVSC2019US085632

PATIENT
  Age: 14 Year
  Sex: Male
  Weight: 60.9 kg

DRUGS (8)
  1. INC424A [Suspect]
     Active Substance: RUXOLITINIB
     Indication: ACUTE LYMPHOCYTIC LEUKAEMIA
     Dosage: 80 MG, BID
     Route: 048
     Dates: start: 20190617
  2. CYTARABINE. [Suspect]
     Active Substance: CYTARABINE
     Indication: ACUTE LYMPHOCYTIC LEUKAEMIA
     Dosage: 120 MG, QD, ON DID 36 TO 39
     Route: 042
     Dates: start: 20190617
  3. CYCLOPHOSPHAMIDE. [Suspect]
     Active Substance: CYCLOPHOSPHAMIDE
     Indication: ACUTE LYMPHOCYTIC LEUKAEMIA
     Dosage: 1600 MG, 1X DID29
     Route: 042
     Dates: start: 20190617
  4. ERWINIA [Suspect]
     Active Substance: ASPARAGINASE ERWINIA CHRYSANTHEMI
     Indication: ACUTE LYMPHOCYTIC LEUKAEMIA
     Dosage: 40000 (6 IM INJECTIONS OVER 2 WKS)
     Route: 030
     Dates: start: 20191219, end: 20191221
  5. VINCRISTINE [Suspect]
     Active Substance: VINCRISTINE
     Indication: ACUTE LYMPHOCYTIC LEUKAEMIA
     Dosage: 2 MG, DID1, D8, D15, D43, D50
     Route: 042
     Dates: start: 20190701
  6. THIOGUANINE [Suspect]
     Active Substance: THIOGUANINE
     Indication: ACUTE LYMPHOCYTIC LEUKAEMIA
     Dosage: 80 MG SUN / 120 MG M-SAT, QHS (X 14 DAYS)
     Route: 048
     Dates: start: 20191206
  7. METHOTREXATE. [Suspect]
     Active Substance: METHOTREXATE
     Indication: ACUTE LYMPHOCYTIC LEUKAEMIA
     Dosage: 15 MG, DID1, D29, D36
     Route: 037
     Dates: start: 20190617
  8. CYTARABINE. [Suspect]
     Active Substance: CYTARABINE
     Dosage: 120 MG, QD
     Route: 042
     Dates: start: 20191213

REACTIONS (2)
  - Febrile neutropenia [Recovered/Resolved]
  - Upper gastrointestinal haemorrhage [Recovered/Resolved]

NARRATIVE: CASE EVENT DATE: 20191225
